FAERS Safety Report 4664849-2 (Version None)
Quarter: 2005Q2

REPORT INFORMATION
  Report Type: 
  Country: None (occurrence: None)
  Receive Date: 20050517
  Receipt Date: 20050506
  Transmission Date: 20051028
  Serious: Yes (Disabling, Other)
  Sender: FDA-Public Use
  Company Number: GBWYE521221MAR05

PATIENT
  Age: 40 Year
  Sex: Female

DRUGS (1)
  1. EFFEXOR [Suspect]
     Indication: DEPRESSION
     Dosage: 112.5 MG DAILY ORAL
     Route: 048
     Dates: start: 20050127, end: 20050403

REACTIONS (5)
  - ANXIETY [None]
  - CONDITION AGGRAVATED [None]
  - IRRITABLE BOWEL SYNDROME [None]
  - JAW DISORDER [None]
  - RASH PRURITIC [None]
